FAERS Safety Report 13343392 (Version 2)
Quarter: 2018Q3

REPORT INFORMATION
  Report Type: Spontaneous
  Country: NO (occurrence: NO)
  Receive Date: 20170316
  Receipt Date: 20180726
  Transmission Date: 20181010
  Serious: Yes (Death, Other)
  Sender: FDA-Public Use
  Company Number: NO-TEVA-748134ACC

PATIENT
  Age: 25 Year
  Sex: Female

DRUGS (6)
  1. METHOTREXATE SODIUM. [Suspect]
     Active Substance: METHOTREXATE SODIUM
     Dosage: GIVEN ACCORDING TO NOPHO PROTOCOL
     Route: 037
     Dates: start: 20160919, end: 20161115
  2. PREDNISOLON [Suspect]
     Active Substance: PREDNISOLONE
     Indication: ACUTE LYMPHOCYTIC LEUKAEMIA
     Dosage: GIVEN ACCORDING TO NOPHO PROTOCOL
     Route: 037
     Dates: start: 20160919, end: 20161115
  3. CYTARABINE. [Suspect]
     Active Substance: CYTARABINE
     Dosage: GIVEN ACCORDING TO NOPHO PROTOCOL
     Route: 037
     Dates: start: 20160919, end: 20161115
  4. METHOTREXATE SODIUM. [Suspect]
     Active Substance: METHOTREXATE SODIUM
     Indication: ACUTE LYMPHOCYTIC LEUKAEMIA
     Dosage: GIVEN ACCORDING TO NOPHO PROTOCOL
     Route: 037
     Dates: start: 20160628, end: 20160918
  5. PREDNISOLON [Suspect]
     Active Substance: PREDNISOLONE
     Dosage: GIVEN ACCORDING TO NOPHO PROTOCOL
     Route: 037
     Dates: start: 20160628, end: 2016
  6. CYTARABINE. [Suspect]
     Active Substance: CYTARABINE
     Indication: ACUTE LYMPHOCYTIC LEUKAEMIA
     Dosage: GIVEN ACCORDING TO NOPHO PROTOCOL
     Route: 037
     Dates: start: 20160628, end: 201609

REACTIONS (7)
  - Paralysis [Not Recovered/Not Resolved]
  - Toxicity to various agents [Not Recovered/Not Resolved]
  - Neoplasm recurrence [Unknown]
  - Anal sphincter atony [Not Recovered/Not Resolved]
  - Motor dysfunction [Not Recovered/Not Resolved]
  - Myelopathy [Unknown]
  - Neurogenic bladder [Not Recovered/Not Resolved]

NARRATIVE: CASE EVENT DATE: 201608
